FAERS Safety Report 5063379-6 (Version None)
Quarter: 2006Q3

REPORT INFORMATION
  Report Type: 
  Country: None (occurrence: None)
  Receive Date: 20060724
  Receipt Date: 20060713
  Transmission Date: 20061208
  Serious: Yes (Hospitalization, Other)
  Sender: FDA-Public Use
  Company Number: 2006-06-0187

PATIENT
  Age: 26 Year
  Sex: Female
  Weight: 60 kg

DRUGS (2)
  1. CELESTONE SOLUSPAN [Suspect]
     Indication: JOINT SPRAIN
     Dosage: 1 AMPOULE
     Dates: start: 20060601, end: 20060601
  2. ACETAMINOPHEN [Concomitant]

REACTIONS (6)
  - ANXIETY [None]
  - CONVERSION DISORDER [None]
  - DIPLEGIA [None]
  - GAIT DISTURBANCE [None]
  - MUSCULAR WEAKNESS [None]
  - SENSATION OF HEAVINESS [None]
